FAERS Safety Report 11081141 (Version 1)
Quarter: 2015Q2

REPORT INFORMATION
  Report Type: Spontaneous
  Country: US (occurrence: US)
  Receive Date: 20150501
  Receipt Date: 20150501
  Transmission Date: 20150821
  Serious: Yes (Other)
  Sender: FDA-Public Use
  Company Number: US-BRACCO-012050

PATIENT
  Age: 53 Year
  Sex: Male

DRUGS (1)
  1. READI-CAT [Suspect]
     Active Substance: BARIUM SULFATE
     Indication: COMPUTERISED TOMOGRAM
     Dosage: DRANK 2 BOTTLES (450 ML/BOTTLE)
     Route: 048
     Dates: start: 201403, end: 201403

REACTIONS (1)
  - Retinal detachment [Recovered/Resolved]

NARRATIVE: CASE EVENT DATE: 201404
